FAERS Safety Report 12284006 (Version 1)
Quarter: 2016Q2

REPORT INFORMATION
  Report Type: Spontaneous
  Country: CA (occurrence: CA)
  Receive Date: 20160419
  Receipt Date: 20160419
  Transmission Date: 20160815
  Serious: Yes (Death, Hospitalization, Other)
  Sender: FDA-Public Use
  Company Number: CA-BAXALTA-2016BLT002343

PATIENT
  Age: 61 Year
  Sex: Female

DRUGS (15)
  1. APO-AZATHIOPRINE [Suspect]
     Active Substance: AZATHIOPRINE
     Indication: PYODERMA GANGRENOSUM
     Dosage: 150 MG, 2X A DAY
     Route: 048
  2. APO-AZATHIOPRINE [Suspect]
     Active Substance: AZATHIOPRINE
     Indication: MYASTHENIA GRAVIS
     Dosage: 100 MG, 2X A DAY
     Route: 048
  3. HYDROCORTISONE. [Suspect]
     Active Substance: HYDROCORTISONE
     Indication: PYODERMA GANGRENOSUM
     Dosage: 50 MG, 4X A DAY
     Route: 042
  4. MORPHINE [Suspect]
     Active Substance: MORPHINE
     Indication: PYODERMA GANGRENOSUM
     Dosage: 2 UNK, UNK
     Route: 065
  5. CYCLOSPORINE. [Suspect]
     Active Substance: CYCLOSPORINE
     Indication: PYODERMA GANGRENOSUM
     Dosage: 400 MG, 1X A DAY
     Route: 065
  6. MINOCYCLINE [Suspect]
     Active Substance: MINOCYCLINE\MINOCYCLINE HYDROCHLORIDE
     Indication: PYODERMA GANGRENOSUM
     Dosage: 100 MG, 2X A DAY
     Route: 048
  7. APO-PREDNISONE [Suspect]
     Active Substance: PREDNISONE
     Indication: PYODERMA GANGRENOSUM
     Dosage: 70 MG, 1X A DAY
     Route: 048
  8. INTRASITE                          /00007001/ [Concomitant]
     Indication: PRODUCT USED FOR UNKNOWN INDICATION
  9. PREDNISOLONE. [Suspect]
     Active Substance: PREDNISOLONE
     Indication: PYODERMA GANGRENOSUM
     Dosage: 70 MG, 1X A DAY
     Route: 048
  10. COLCHICINE. [Suspect]
     Active Substance: COLCHICINE
     Indication: PYODERMA GANGRENOSUM
     Dosage: 0.6 MG, 2X A DAY
     Route: 048
  11. FLOVENT HFA [Suspect]
     Active Substance: FLUTICASONE PROPIONATE
     Indication: PYODERMA GANGRENOSUM
     Dosage: 250 MG, UNK
     Route: 061
  12. GAMMAGARD LIQUID [Suspect]
     Active Substance: HUMAN IMMUNOGLOBULIN G
     Indication: OFF LABEL USE
  13. MINOCYCLINE [Suspect]
     Active Substance: MINOCYCLINE\MINOCYCLINE HYDROCHLORIDE
     Indication: PYODERMA GANGRENOSUM
     Dosage: 100 MG, 2X A DAY
     Route: 048
  14. GAMMAGARD LIQUID [Suspect]
     Active Substance: HUMAN IMMUNOGLOBULIN G
     Indication: PYODERMA GANGRENOSUM
     Dosage: UNK UNK, 1X A DAY
     Route: 042
  15. PREDNISONE. [Suspect]
     Active Substance: PREDNISONE
     Indication: PYODERMA GANGRENOSUM
     Dosage: UNK
     Route: 048

REACTIONS (11)
  - Hepatic failure [Unknown]
  - Septic shock [Unknown]
  - Enterococcal sepsis [Unknown]
  - Urinary tract infection [Unknown]
  - Drug ineffective [Unknown]
  - Pancytopenia [Unknown]
  - Death [Fatal]
  - Disseminated intravascular coagulation [Unknown]
  - Pulmonary mass [Unknown]
  - Treatment failure [Unknown]
  - Therapeutic response decreased [Unknown]
